FAERS Safety Report 7816138-2 (Version None)
Quarter: 2011Q4

REPORT INFORMATION
  Report Type: 
  Country: None (occurrence: None)
  Receive Date: 20111015
  Receipt Date: 20110921
  Transmission Date: 20120403
  Serious: Yes (Hospitalization)
  Sender: FDA-Public Use
  Company Number: US-ROCHE-1001764

PATIENT
  Sex: Female

DRUGS (3)
  1. MONTELUKAST SODIUM [Concomitant]
  2. XOLAIR [Suspect]
     Indication: ASTHMA
     Dates: start: 20110601
  3. METICORTEN [Concomitant]

REACTIONS (1)
  - ASTHMA [None]
